FAERS Safety Report 5085092-1 (Version None)
Quarter: 2006Q3

REPORT INFORMATION
  Report Type: 
  Country: None (occurrence: None)
  Receive Date: 20060817
  Receipt Date: 20060804
  Transmission Date: 20061208
  Serious: Yes (Hospitalization, Disabling)
  Sender: FDA-Public Use
  Company Number: ABOHC-06-0341

PATIENT
  Age: 78 Year
  Sex: Female

DRUGS (8)
  1. ABRAXANE [Suspect]
     Indication: INFLAMMATORY CARCINOMA OF THE BREAST
     Dosage: 178 MG/  18 DOSES (100 MG/M2, WEEKLY FOR 3 WEEKS - 1 WK OFF), INTRAVENOUS DRIP
     Route: 041
     Dates: start: 20051003, end: 20060502
  2. ABRAXANE [Suspect]
  3. ABRAXANE [Suspect]
  4. PHENERGAN (PROMETHAZINE HYDROCHLORIDE) [Concomitant]
  5. EZETIMIBE [Concomitant]
  6. ALBUTEROL [Concomitant]
  7. AVASTIN [Concomitant]
  8. MORPHINE [Concomitant]

REACTIONS (5)
  - ASTHENIA [None]
  - IMPAIRED SELF-CARE [None]
  - MOVEMENT DISORDER [None]
  - NEUROPATHY [None]
  - SPINAL CORD COMPRESSION [None]
